FAERS Safety Report 9057609 (Version 1)
Quarter: 2013Q1

REPORT INFORMATION
  Report Type: Spontaneous
  Country: US (occurrence: US)
  Receive Date: 20130204
  Receipt Date: 20130204
  Transmission Date: 20140127
  Serious: Yes (Other)
  Sender: FDA-Public Use
  Company Number: US-PFIZER INC-2013045011

PATIENT
  Age: 50 Year
  Sex: Female
  Weight: 45.35 kg

DRUGS (2)
  1. ZOLOFT [Suspect]
     Indication: ANXIETY
     Dosage: 25 MG, 1X/DAY
     Route: 048
     Dates: end: 2004
  2. ZOLOFT [Suspect]
     Indication: DEPRESSION

REACTIONS (2)
  - Mental disorder [Unknown]
  - Drug ineffective [Unknown]
